FAERS Safety Report 8954394 (Version 1)
Quarter: 2012Q4

REPORT INFORMATION
  Report Type: 
  Country: US (occurrence: US)
  Receive Date: 20121207
  Receipt Date: 20121207
  Transmission Date: 20130627
  Serious: Yes (Other)
  Sender: FDA-Public Use
  Company Number: US-B.I. PHARMACEUTICALS,INC./RIDGEFIELD-2012-BI-02218BP

PATIENT
  Age: 62 Year
  Sex: Female
  Weight: 95.25 kg

DRUGS (3)
  1. MOBIC [Suspect]
     Dosage: 7.5 mg
  2. XARELTO [Suspect]
     Indication: THROMBOSIS PROPHYLAXIS
     Route: 048
     Dates: start: 20121030, end: 20121031
  3. XARELTO [Suspect]
     Indication: ORTHOPAEDIC PROCEDURE

REACTIONS (1)
  - Epistaxis [Recovered/Resolved]
